FAERS Safety Report 7430060-5 (Version None)
Quarter: 2011Q2

REPORT INFORMATION
  Report Type: 
  Country: None (occurrence: None)
  Receive Date: 20110421
  Receipt Date: 20100624
  Transmission Date: 20111010
  Serious: No
  Sender: FDA-Public Use
  Company Number: US-ASTRAZENECA-2010SE29696

PATIENT
  Age: 29 Year
  Sex: Male
  Weight: 81.6 kg

DRUGS (6)
  1. METOPROLOL SUCCINATE [Suspect]
     Route: 048
  2. FENOFIBRATE [Concomitant]
  3. SIMVASTATIN [Concomitant]
  4. FLONASE [Concomitant]
  5. PROAIR HFA [Concomitant]
  6. METOPROLOL TARTRATE [Suspect]
     Route: 065

REACTIONS (2)
  - MALAISE [None]
  - URTICARIA [None]
